FAERS Safety Report 18493061 (Version 4)
Quarter: 2022Q3

REPORT INFORMATION
  Report Type: Report from Study
  Country: JP (occurrence: JP)
  Receive Date: 20201111
  Receipt Date: 20220812
  Transmission Date: 20221026
  Serious: Yes (Hospitalization, Other)
  Sender: FDA-Public Use
  Company Number: JP-ACTELION-A-CH2016-143981

PATIENT
  Age: 38 Year
  Sex: Female
  Weight: 49.6 kg

DRUGS (50)
  1. OPSUMIT [Suspect]
     Active Substance: MACITENTAN
     Indication: Pulmonary arterial hypertension
     Dosage: 10 MG, QD
     Route: 048
     Dates: start: 20160603
  2. OPSUMIT [Suspect]
     Active Substance: MACITENTAN
     Indication: Pulmonary arterial hypertension
  3. UPTRAVI [Suspect]
     Active Substance: SELEXIPAG
     Indication: Pulmonary arterial hypertension
     Dosage: 0.8 MG, BID
     Route: 048
     Dates: start: 20190328, end: 20190515
  4. UPTRAVI [Suspect]
     Active Substance: SELEXIPAG
     Dosage: 0.2 MG, BID
     Route: 048
     Dates: start: 20181220, end: 20190116
  5. UPTRAVI [Suspect]
     Active Substance: SELEXIPAG
     Dosage: 0.4 MG, BID
     Route: 048
     Dates: start: 20190117, end: 20190220
  6. UPTRAVI [Suspect]
     Active Substance: SELEXIPAG
     Dosage: 0.6 MG, BID
     Route: 048
     Dates: start: 20190221, end: 20190327
  7. UPTRAVI [Suspect]
     Active Substance: SELEXIPAG
     Dosage: 1.0 MG, BID
     Route: 048
     Dates: start: 20190516, end: 20190619
  8. UPTRAVI [Suspect]
     Active Substance: SELEXIPAG
     Dosage: 1.2 MG, BID
     Route: 048
     Dates: start: 20190620, end: 20190717
  9. UPTRAVI [Suspect]
     Active Substance: SELEXIPAG
     Route: 048
     Dates: start: 20190718, end: 20190821
  10. UPTRAVI [Suspect]
     Active Substance: SELEXIPAG
     Route: 048
     Dates: start: 20190822, end: 20190918
  11. UPTRAVI [Suspect]
     Active Substance: SELEXIPAG
     Route: 048
     Dates: start: 20190919, end: 20191016
  12. UPTRAVI [Suspect]
     Active Substance: SELEXIPAG
     Route: 048
     Dates: start: 20191017, end: 20201217
  13. UPTRAVI [Suspect]
     Active Substance: SELEXIPAG
     Route: 048
     Dates: start: 20201218
  14. WARFARIN POTASSIUM [Suspect]
     Active Substance: WARFARIN POTASSIUM
     Indication: Pulmonary arterial hypertension
     Dosage: 3 MG, QD
     Route: 048
     Dates: start: 20141104, end: 20160713
  15. WARFARIN POTASSIUM [Suspect]
     Active Substance: WARFARIN POTASSIUM
     Dosage: 2 MG, QD
     Route: 048
     Dates: start: 20160719, end: 20161215
  16. LOXOPROFEN SODIUM [Suspect]
     Active Substance: LOXOPROFEN SODIUM
     Indication: Headache
     Dosage: UNK, PRN
     Route: 048
     Dates: start: 20151008, end: 20160729
  17. BERAPROST SODIUM [Suspect]
     Active Substance: BERAPROST SODIUM
     Indication: Pulmonary arterial hypertension
     Dosage: 60 MCG, BID
     Route: 048
     Dates: start: 20140909
  18. BERAPROST SODIUM [Suspect]
     Active Substance: BERAPROST SODIUM
     Dosage: 60-120 MCG, QD
     Route: 048
     Dates: end: 20181220
  19. CANDESARTAN [Suspect]
     Active Substance: CANDESARTAN
     Indication: Pulmonary arterial hypertension
     Dosage: 8 MG, QD
     Route: 048
     Dates: start: 20181120, end: 20181220
  20. PREDNISOLONE [Suspect]
     Active Substance: PREDNISOLONE
     Indication: Product used for unknown indication
     Route: 048
  21. SODIUM FERROUS CITRATE [Concomitant]
     Active Substance: SODIUM FERROUS CITRATE
     Indication: Nephrogenic anaemia
  22. SODIUM FERROUS CITRATE [Concomitant]
     Active Substance: SODIUM FERROUS CITRATE
  23. AZOSEMIDE [Concomitant]
     Active Substance: AZOSEMIDE
     Indication: Product used for unknown indication
  24. AZOSEMIDE [Concomitant]
     Active Substance: AZOSEMIDE
     Dates: end: 20200716
  25. AZOSEMIDE [Concomitant]
     Active Substance: AZOSEMIDE
     Dates: start: 20200717
  26. SILDENAFIL CITRATE [Concomitant]
     Active Substance: SILDENAFIL CITRATE
     Indication: Pulmonary arterial hypertension
     Dates: start: 20210803, end: 20210902
  27. SILDENAFIL CITRATE [Concomitant]
     Active Substance: SILDENAFIL CITRATE
     Dates: start: 20210903
  28. ZOLPIDEM [Concomitant]
     Active Substance: ZOLPIDEM TARTRATE
     Indication: Product used for unknown indication
     Dates: start: 20200423, end: 20210901
  29. AZATHIOPRINE [Concomitant]
     Active Substance: AZATHIOPRINE
     Indication: Product used for unknown indication
  30. RABEPRAZOLE SODIUM [Concomitant]
     Active Substance: RABEPRAZOLE SODIUM
     Indication: Prophylaxis
  31. CLARITHROMYCIN [Concomitant]
     Active Substance: CLARITHROMYCIN
     Indication: Product used for unknown indication
  32. EPOETIN BETA RECOMBINANT [Concomitant]
     Indication: Nephrogenic anaemia
     Dosage: UNK
     Dates: end: 20190117
  33. EPOETIN BETA RECOMBINANT [Concomitant]
     Dosage: UNK
     Dates: start: 20190221, end: 20200813
  34. EPOETIN BETA RECOMBINANT [Concomitant]
     Dosage: UNK
     Dates: start: 20200910
  35. ALLOPURINOL [Concomitant]
     Active Substance: ALLOPURINOL
     Indication: Hyperuricaemia
  36. ACETAMINOPHEN [Concomitant]
     Active Substance: ACETAMINOPHEN
     Indication: Product used for unknown indication
  37. OXYGEN [Concomitant]
     Active Substance: OXYGEN
     Indication: Product used for unknown indication
  38. TANKARU [Concomitant]
     Indication: Prophylaxis
     Dates: start: 20181220
  39. TANKARU [Concomitant]
     Dates: end: 20201217
  40. TANKARU [Concomitant]
     Dates: start: 20201218
  41. ROZEREM [Concomitant]
     Active Substance: RAMELTEON
     Indication: Insomnia
     Dates: start: 20190516, end: 20200422
  42. AZOSEMIDE [Concomitant]
     Active Substance: AZOSEMIDE
     Dosage: 30 MG, QD
  43. AZOSEMIDE [Concomitant]
     Active Substance: AZOSEMIDE
     Dates: end: 20200716
  44. AZOSEMIDE [Concomitant]
     Active Substance: AZOSEMIDE
     Dates: start: 20200717
  45. SODIUM FERROUS CITRATE [Concomitant]
     Active Substance: SODIUM FERROUS CITRATE
     Indication: Nephrogenic anaemia
     Dosage: 50 MG, QD
  46. SODIUM FERROUS CITRATE [Concomitant]
     Active Substance: SODIUM FERROUS CITRATE
     Dosage: 50 MG, QD
  47. ROCALTROL [Concomitant]
     Active Substance: CALCITRIOL
     Indication: Prophylaxis
     Dates: start: 20190718
  48. EPOETIN BETA [Concomitant]
     Active Substance: ERYTHROPOIETIN
     Indication: Nephrogenic anaemia
     Dates: end: 20190117
  49. EPOETIN BETA [Concomitant]
     Active Substance: ERYTHROPOIETIN
     Dates: start: 20190221, end: 20200813
  50. EPOETIN BETA [Concomitant]
     Active Substance: ERYTHROPOIETIN
     Dates: start: 20200910, end: 20210128

REACTIONS (38)
  - Ovarian haemorrhage [Recovering/Resolving]
  - Anaemia [Recovering/Resolving]
  - Abdominal pain [Recovering/Resolving]
  - Haematocrit decreased [Recovering/Resolving]
  - Red blood cell count decreased [Recovering/Resolving]
  - Haemoglobin decreased [Recovering/Resolving]
  - Transfusion [Unknown]
  - Acute kidney injury [Recovered/Resolved]
  - Cervical dysplasia [Not Recovered/Not Resolved]
  - Cardiac failure [Recovered/Resolved]
  - Heavy menstrual bleeding [Recovering/Resolving]
  - Haemorrhage [Recovering/Resolving]
  - Intra-abdominal haemorrhage [Recovering/Resolving]
  - Pneumonia [Recovering/Resolving]
  - Dyspnoea [Recovered/Resolved]
  - Enteritis infectious [Recovered/Resolved]
  - Renal failure [Not Recovered/Not Resolved]
  - Depression [Recovering/Resolving]
  - Headache [Recovered/Resolved]
  - Upper respiratory tract inflammation [Recovered/Resolved]
  - Nausea [Recovered/Resolved]
  - Purpura [Recovered/Resolved]
  - Pulmonary hypertension [Recovered/Resolved]
  - Herpes zoster [Recovering/Resolving]
  - Nasopharyngitis [Recovered/Resolved]
  - Ligament sprain [Recovered/Resolved]
  - Fall [Recovered/Resolved]
  - Cough [Recovered/Resolved]
  - Productive cough [Recovered/Resolved]
  - Pulmonary arterial pressure increased [Recovered/Resolved]
  - Pain in extremity [Recovering/Resolving]
  - Diffuse alopecia [Recovering/Resolving]
  - Hypozincaemia [Recovering/Resolving]
  - Hypotension [Recovered/Resolved]
  - Pleural effusion [Recovered/Resolved]
  - Osteoporosis [Not Recovered/Not Resolved]
  - Amenorrhoea [Recovered/Resolved]
  - Brain natriuretic peptide increased [Recovering/Resolving]

NARRATIVE: CASE EVENT DATE: 20160711
